FAERS Safety Report 21502458 (Version 2)
Quarter: 2022Q4

REPORT INFORMATION
  Report Type: Spontaneous
  Country: BR (occurrence: BR)
  Receive Date: 20221025
  Receipt Date: 20221215
  Transmission Date: 20230113
  Serious: Yes (Other)
  Sender: FDA-Public Use
  Company Number: BR-TAKEDA-2022TUS077314

PATIENT
  Age: 40 Year
  Sex: Female
  Weight: 85 kg

DRUGS (4)
  1. LISDEXAMFETAMINE DIMESYLATE [Suspect]
     Active Substance: LISDEXAMFETAMINE DIMESYLATE
     Indication: Attention deficit hyperactivity disorder
     Dosage: 50 MILLIGRAM, QD
     Route: 048
  2. LISDEXAMFETAMINE DIMESYLATE [Suspect]
     Active Substance: LISDEXAMFETAMINE DIMESYLATE
     Dosage: 30 MILLIGRAM, QD
     Route: 048
  3. QUETIAPINE [Concomitant]
     Active Substance: QUETIAPINE
     Indication: Bipolar disorder
     Dosage: 300 MILLIGRAM, QD
     Route: 065
     Dates: start: 2017
  4. TOPIRAMATE [Concomitant]
     Active Substance: TOPIRAMATE
     Indication: Bipolar disorder
     Dosage: 100 MILLIGRAM, BID
     Dates: start: 2017

REACTIONS (6)
  - Condition aggravated [Unknown]
  - Fatigue [Not Recovered/Not Resolved]
  - Loss of personal independence in daily activities [Not Recovered/Not Resolved]
  - Sleep disorder [Not Recovered/Not Resolved]
  - Drug effect less than expected [Not Recovered/Not Resolved]
  - Product availability issue [Not Recovered/Not Resolved]

NARRATIVE: CASE EVENT DATE: 20220101
